FAERS Safety Report 23943757 (Version 1)
Quarter: 2024Q2

REPORT INFORMATION
  Report Type: Spontaneous
  Country: US (occurrence: US)
  Receive Date: 20240606
  Receipt Date: 20240606
  Transmission Date: 20240716
  Serious: No
  Sender: FDA-Public Use
  Company Number: US-OPELLA-2024OHG019121

PATIENT

DRUGS (3)
  1. ALLEGRA [Suspect]
     Active Substance: FEXOFENADINE HYDROCHLORIDE
     Indication: Rash pruritic
  2. LORBRENA [Suspect]
     Active Substance: LORLATINIB
     Indication: Lung neoplasm malignant
     Dates: start: 20240318
  3. PEPCID [Concomitant]
     Active Substance: FAMOTIDINE
     Indication: Rash pruritic

REACTIONS (2)
  - Therapeutic response decreased [Unknown]
  - No adverse event [Unknown]

NARRATIVE: CASE EVENT DATE: 20240516
